FAERS Safety Report 10430775 (Version 2)
Quarter: 2014Q3

REPORT INFORMATION
  Report Type: Spontaneous
  Country: DK (occurrence: DK)
  Receive Date: 20140904
  Receipt Date: 20140904
  Transmission Date: 20150326
  Serious: Yes (Other)
  Sender: FDA-Public Use
  Company Number: PHHY2011DK65125

PATIENT
  Age: 66 Year
  Sex: Male
  Weight: 91 kg

DRUGS (6)
  1. HJERTEMAGNYL ^DAK^ [Concomitant]
  2. PERSANTIN [Concomitant]
     Active Substance: DIPYRIDAMOLE
  3. CIPROFLOXACIN SANDOZ [Suspect]
     Active Substance: CIPROFLOXACIN
     Indication: CYSTITIS
     Dosage: 500 MG, BID
     Route: 048
     Dates: start: 20110304, end: 20110317
  4. HEXANURAT [Concomitant]
     Indication: GOUT
  5. SIMVASTATIN. [Concomitant]
     Active Substance: SIMVASTATIN
  6. HEXANURAT [Concomitant]
     Indication: GOUT

REACTIONS (7)
  - Tendon pain [Not Recovered/Not Resolved]
  - Mobility decreased [Not Recovered/Not Resolved]
  - Tendonitis [Recovered/Resolved]
  - Tendon rupture [Recovered/Resolved]
  - Swelling [Recovering/Resolving]
  - Progressive muscular atrophy [Not Recovered/Not Resolved]
  - Gait disturbance [Not Recovered/Not Resolved]

NARRATIVE: CASE EVENT DATE: 20110304
